FAERS Safety Report 6551802-7 (Version None)
Quarter: 2010Q1

REPORT INFORMATION
  Report Type: 
  Country: None (occurrence: None)
  Receive Date: 20100120
  Receipt Date: 20100114
  Transmission Date: 20100710
  Serious: Yes (Other)
  Sender: FDA-Public Use
  Company Number: TCI2009A05063

PATIENT
  Age: 62 Year
  Sex: Male

DRUGS (7)
  1. LANSOPRAZOLE [Suspect]
     Indication: REFLUX OESOPHAGITIS
     Dosage: 15 MG (15 MG,1 IN 1 D) PER ORAL
     Route: 048
     Dates: start: 20091015, end: 20091112
  2. PLAVIX [Concomitant]
  3. DOXAZOSIN MESYLATE [Concomitant]
  4. NORVASC [Concomitant]
  5. NATRIX (INDAPAMIDE) [Concomitant]
  6. AVAPRO [Concomitant]
  7. LIPITOR [Concomitant]

REACTIONS (9)
  - DYSPHAGIA [None]
  - ERYTHEMA [None]
  - FACE OEDEMA [None]
  - LARYNGEAL OEDEMA [None]
  - OROPHARYNGEAL PAIN [None]
  - PRURITUS [None]
  - RASH GENERALISED [None]
  - RESPIRATORY FAILURE [None]
  - VOMITING [None]
